FAERS Safety Report 19456648 (Version 2)
Quarter: 2021Q3

REPORT INFORMATION
  Report Type: Spontaneous
  Country: US (occurrence: US)
  Receive Date: 20210624
  Receipt Date: 20210720
  Transmission Date: 20211014
  Serious: Yes (Other)
  Sender: FDA-Public Use
  Company Number: US-BEH-2021133091

PATIENT
  Age: 67 Year
  Sex: Female

DRUGS (3)
  1. HIZENTRA [Suspect]
     Active Substance: HUMAN IMMUNOGLOBULIN G
     Dosage: 13 GRAM, QW
     Route: 058
     Dates: start: 2016
  2. HIZENTRA [Suspect]
     Active Substance: HUMAN IMMUNOGLOBULIN G
     Dosage: UNK
     Route: 058
  3. HIZENTRA [Suspect]
     Active Substance: HUMAN IMMUNOGLOBULIN G
     Indication: IMMUNODEFICIENCY COMMON VARIABLE
     Dosage: 13 GRAM, QW
     Route: 058
     Dates: start: 2019

REACTIONS (13)
  - Speech disorder [Unknown]
  - Infusion site bruising [Recovered/Resolved]
  - Anxiety [Recovered/Resolved]
  - Hypokinesia [Unknown]
  - Brain injury [Unknown]
  - Depression [Recovered/Resolved]
  - COVID-19 [Unknown]
  - Dyspnoea [Recovered/Resolved]
  - Balance disorder [Unknown]
  - Cough [Unknown]
  - Asthma [Recovered/Resolved]
  - Feeling abnormal [Unknown]
  - Rhinorrhoea [Unknown]

NARRATIVE: CASE EVENT DATE: 202010
